FAERS Safety Report 9123222 (Version 3)
Quarter: 2013Q2

REPORT INFORMATION
  Report Type: Spontaneous
  Country: US (occurrence: US)
  Receive Date: 20130115
  Receipt Date: 20130523
  Transmission Date: 20140414
  Serious: Yes (Other)
  Sender: FDA-Public Use
  Company Number: US-BAYER-2013-003848

PATIENT
  Age: 27 Year
  Sex: Female
  Weight: 49.43 kg

DRUGS (1)
  1. MIRENA [Suspect]
     Dosage: 20 MCG/24HR, CONT
     Route: 015
     Dates: start: 20121212

REACTIONS (5)
  - Lymphadenopathy [Recovered/Resolved]
  - Swelling [None]
  - Tri-iodothyronine increased [None]
  - Alopecia [Not Recovered/Not Resolved]
  - Tachycardia [None]
